FAERS Safety Report 9805408 (Version 3)
Quarter: 2014Q1

REPORT INFORMATION
  Report Type: Report from Study
  Country: TR (occurrence: TR)
  Receive Date: 20140109
  Receipt Date: 20140116
  Transmission Date: 20141002
  Serious: Yes (Hospitalization)
  Sender: FDA-Public Use
  Company Number: TR-ROCHE-1329007

PATIENT
  Age: 71 Year
  Sex: Female
  Weight: 69 kg

DRUGS (14)
  1. TOCILIZUMAB [Suspect]
     Indication: RHEUMATOID ARTHRITIS
     Dosage: MOST RECENT DOSE OF TOCILIZUMAB: 04/DEC/2013
     Route: 042
     Dates: start: 20130619
  2. DELTACORTRIL (TURKEY) [Concomitant]
     Indication: RHEUMATOID ARTHRITIS
     Route: 048
     Dates: start: 2011, end: 20130814
  3. DELTACORTRIL (TURKEY) [Concomitant]
     Route: 048
     Dates: start: 20130814, end: 20130821
  4. DELTACORTRIL (TURKEY) [Concomitant]
     Route: 048
     Dates: start: 20130910
  5. PLAQUENIL [Concomitant]
     Indication: RHEUMATOID ARTHRITIS
     Route: 048
     Dates: start: 2013, end: 20130814
  6. METOART [Concomitant]
     Indication: RHEUMATOID ARTHRITIS
     Route: 030
     Dates: start: 2013
  7. DIAMICRON [Concomitant]
     Indication: TYPE 1 DIABETES MELLITUS
     Route: 048
     Dates: start: 2008
  8. NORVASC [Concomitant]
     Indication: HYPERTENSION
     Route: 048
     Dates: start: 2006
  9. FOLBIOL [Concomitant]
     Indication: PROPHYLAXIS
     Route: 048
     Dates: start: 20130521
  10. INH [Concomitant]
     Indication: PROPHYLAXIS
     Route: 048
     Dates: start: 20130515, end: 20130616
  11. INH [Concomitant]
     Route: 048
     Dates: start: 20130616, end: 20130703
  12. INH [Concomitant]
     Route: 048
     Dates: start: 20130703, end: 20130714
  13. INH [Concomitant]
     Route: 048
     Dates: start: 20130827
  14. ZYLET [Concomitant]
     Indication: MACULAR DEGENERATION
     Dosage: 1 DROPS
     Route: 047
     Dates: start: 20131206

REACTIONS (1)
  - Bronchitis [Recovered/Resolved]
